FAERS Safety Report 9007070 (Version 3)
Quarter: 2013Q1

REPORT INFORMATION
  Report Type: Spontaneous
  Country: US (occurrence: US)
  Receive Date: 20130110
  Receipt Date: 20130206
  Transmission Date: 20140127
  Serious: Yes (Hospitalization)
  Sender: FDA-Public Use
  Company Number: US-BAXTER-2013BAX000723

PATIENT
  Age: 69 Year
  Sex: Male

DRUGS (1)
  1. DIANEAL LOW CALCIUM [Suspect]
     Indication: PERITONEAL DIALYSIS
     Route: 033
     Dates: start: 20101216

REACTIONS (3)
  - Cardiac failure congestive [Recovering/Resolving]
  - Acinetobacter infection [Recovering/Resolving]
  - Gastrointestinal infection [Recovering/Resolving]
